FAERS Safety Report 16715347 (Version 3)
Quarter: 2019Q3

REPORT INFORMATION
  Report Type: Spontaneous
  Country: US (occurrence: US)
  Receive Date: 20190819
  Receipt Date: 20190927
  Transmission Date: 20191005
  Serious: Yes (Death, Other)
  Sender: FDA-Public Use
  Company Number: US-PFIZER INC-2018477024

PATIENT
  Age: 54 Year
  Sex: Male
  Weight: 89.8 kg

DRUGS (12)
  1. HUMALOG [Concomitant]
     Active Substance: INSULIN LISPRO
     Indication: DIABETES MELLITUS
     Dosage: UNK (2-4 UNITS DURING MEALS, BY INJECTION)
  2. ZOFRAN [Concomitant]
     Active Substance: ONDANSETRON HYDROCHLORIDE
     Indication: NAUSEA
     Dosage: 8 MG, 2X/DAY
     Route: 048
  3. LEXAPRO [Concomitant]
     Active Substance: ESCITALOPRAM OXALATE
     Indication: ANXIETY
     Dosage: 20 MG, 1X/DAY
     Dates: start: 20190801
  4. TESSALON [Concomitant]
     Active Substance: BENZONATATE
     Indication: ANTITUSSIVE THERAPY
     Dosage: UNK, 3X/DAY (1-2 TABLETS)
     Route: 048
     Dates: start: 20190826
  5. HYDROCODONE [Concomitant]
     Active Substance: HYDROCODONE
     Indication: COUGH
  6. QVAR [Concomitant]
     Active Substance: BECLOMETHASONE DIPROPIONATE
     Indication: PNEUMONITIS
     Dosage: UNK, 2X/DAY (2 PUFFS IN THE MORNING AND 2 AT NIGHT, INHALED)
     Dates: start: 20190801
  7. BEVESPI AEROSPHERE [Concomitant]
     Active Substance: FORMOTEROL FUMARATE\GLYCOPYRROLATE
     Indication: PNEUMONITIS
     Dosage: UNK, 2X/DAY (TWO PUFFS IN THE MORNING AND 2 AT NIGHT)
     Route: 055
     Dates: start: 201907
  8. SYNJARDY XR [Concomitant]
     Active Substance: EMPAGLIFLOZIN\METFORMIN HYDROCHLORIDE
     Indication: DIABETES MELLITUS
     Dosage: 1 DF, DAILY
  9. LANTUS [Concomitant]
     Active Substance: INSULIN GLARGINE
     Indication: DIABETES MELLITUS
     Dosage: 29 IU, 1X/DAY (29 UNITS ONCE A DAY IN THE MORNING BY INJECTION)
  10. HYDROCODONE [Concomitant]
     Active Substance: HYDROCODONE
     Indication: PAIN
     Dosage: 1 DF, AS NEEDED (3.25 OR 3.50, LOWEST DOSE. ONE PILL AS NEEDED)
     Dates: start: 201908
  11. LYRICA [Suspect]
     Active Substance: PREGABALIN
     Indication: DIABETIC NEUROPATHY
     Dosage: 25 MG, 2X/DAY
  12. LYRICA [Suspect]
     Active Substance: PREGABALIN
     Indication: TYPE 2 DIABETES MELLITUS
     Dosage: 150 MG, 2X/DAY (TAKE 1 CAPSULE TWICE DAILY)
     Route: 048

REACTIONS (7)
  - Small cell lung cancer [Unknown]
  - Non-small cell lung cancer [Unknown]
  - Myocardial infarction [Unknown]
  - Arrhythmia [Unknown]
  - Pericardial effusion [Fatal]
  - Sleep apnoea syndrome [Unknown]
  - Cardiac arrest [Fatal]

NARRATIVE: CASE EVENT DATE: 20190801
